FAERS Safety Report 24586633 (Version 4)
Quarter: 2024Q4

REPORT INFORMATION
  Report Type: Spontaneous
  Country: US (occurrence: US)
  Receive Date: 20241107
  Receipt Date: 20241204
  Transmission Date: 20250115
  Serious: No
  Sender: ROCHE
  Company Number: US-ROCHE-10000123123

PATIENT
  Age: 59 Year
  Sex: Female
  Weight: 77.11 kg

DRUGS (15)
  1. ACTEMRA [Suspect]
     Active Substance: TOCILIZUMAB
     Indication: Arthritis
     Route: 058
     Dates: start: 20241015
  2. ACTEMRA [Suspect]
     Active Substance: TOCILIZUMAB
     Indication: Inflammation
  3. ACTEMRA [Suspect]
     Active Substance: TOCILIZUMAB
     Indication: Eye disorder
  4. PREDNISONE [Concomitant]
     Active Substance: PREDNISONE
     Indication: Eye disorder
     Route: 048
     Dates: start: 202409, end: 202410
  5. PREDNISONE [Concomitant]
     Active Substance: PREDNISONE
     Route: 048
     Dates: start: 20240716, end: 202409
  6. PREDNISONE [Concomitant]
     Active Substance: PREDNISONE
     Route: 048
     Dates: start: 202410
  7. TYLENOL WITH CODEINE [Concomitant]
     Active Substance: ACETAMINOPHEN\CODEINE PHOSPHATE
     Indication: Osteoarthritis
     Dosage: 300MG/30MG TABLETS
     Route: 048
     Dates: start: 202406
  8. TYLENOL WITH CODEINE [Concomitant]
     Active Substance: ACETAMINOPHEN\CODEINE PHOSPHATE
     Indication: Pain
  9. CELEBREX [Concomitant]
     Active Substance: CELECOXIB
     Indication: Headache
     Route: 048
     Dates: start: 2021, end: 2024
  10. CELEBREX [Concomitant]
     Active Substance: CELECOXIB
     Indication: Pain
     Route: 048
     Dates: start: 2024
  11. CELEBREX [Concomitant]
     Active Substance: CELECOXIB
     Indication: Inflammation
  12. ALEVE [Concomitant]
     Active Substance: NAPROXEN SODIUM
     Indication: Pain prophylaxis
     Dosage: 3 OF 220MG TABLETS, AT BEDTIME, AS NEEDED
     Route: 048
     Dates: start: 2024
  13. VITAMIN B12 [Concomitant]
     Active Substance: CYANOCOBALAMIN
  14. VITAMIN B3 [Concomitant]
     Active Substance: NIACIN
  15. KRILL OIL [Concomitant]
     Active Substance: DIETARY SUPPLEMENT\KRILL OIL

REACTIONS (7)
  - Device malfunction [Unknown]
  - Wrong technique in product usage process [Unknown]
  - Device issue [Unknown]
  - No adverse event [Unknown]
  - Product dose omission issue [Unknown]
  - Device use error [Unknown]
  - Off label use [Unknown]

NARRATIVE: CASE EVENT DATE: 20241015
